FAERS Safety Report 13540924 (Version 1)
Quarter: 2017Q2

REPORT INFORMATION
  Report Type: Spontaneous
  Country: US (occurrence: US)
  Receive Date: 20170512
  Receipt Date: 20170512
  Transmission Date: 20170830
  Serious: No
  Sender: FDA-Public Use
  Company Number: US-JUBILANT CADISTA PHARMACEUTICALS-2017JUB00090

PATIENT
  Age: 65 Year
  Sex: Female

DRUGS (1)
  1. VALACYCLOVIR HYDROCHLORIDE. [Suspect]
     Active Substance: VALACYCLOVIR HYDROCHLORIDE
     Dosage: UNK
     Dates: start: 20170313

REACTIONS (3)
  - Vomiting [Recovering/Resolving]
  - Malaise [Unknown]
  - Herpes zoster [Unknown]

NARRATIVE: CASE EVENT DATE: 20170316
